FAERS Safety Report 8036530-3 (Version None)
Quarter: 2012Q1

REPORT INFORMATION
  Report Type: 
  Country: None (occurrence: None)
  Receive Date: 20120111
  Receipt Date: 20120105
  Transmission Date: 20120608
  Serious: Yes (Death)
  Sender: FDA-Public Use
  Company Number: AU-ALEXION PHARMACEUTICALS INC.-A201200030

PATIENT
  Sex: Male

DRUGS (2)
  1. CIPROFLOXACIN [Concomitant]
  2. SOLIRIS [Suspect]
     Indication: HAEMOLYTIC URAEMIC SYNDROME
     Dosage: UNK
     Route: 042
     Dates: start: 20111210

REACTIONS (2)
  - RESPIRATORY FAILURE [None]
  - SEPSIS [None]
